FAERS Safety Report 11184850 (Version 1)
Quarter: 2015Q2

REPORT INFORMATION
  Report Type: Spontaneous
  Country: US (occurrence: None)
  Receive Date: 20150611
  Receipt Date: 20150611
  Transmission Date: 20150821
  Serious: No
  Sender: FDA-Public Use
  Company Number: None

PATIENT

DRUGS (2)
  1. VANCOMYCIN [Suspect]
     Active Substance: VANCOMYCIN
     Indication: ANTIBIOTIC PROPHYLAXIS
     Dosage: 1 GM OVER 60 MINUTES INTRAVENOUS
     Route: 042
     Dates: start: 20150201, end: 20150410
  2. VANCOMYCIN [Suspect]
     Active Substance: VANCOMYCIN
     Indication: JOINT SURGERY
     Dosage: 1 GM OVER 60 MINUTES INTRAVENOUS
     Route: 042
     Dates: start: 20150201, end: 20150410

REACTIONS (1)
  - Red man syndrome [None]
